FAERS Safety Report 5231199-5 (Version None)
Quarter: 2007Q1

REPORT INFORMATION
  Report Type: 
  Country: None (occurrence: None)
  Receive Date: 20070206
  Receipt Date: 20070130
  Transmission Date: 20070707
  Serious: Yes (Hospitalization)
  Sender: FDA-Public Use
  Company Number: 2007CG00185

PATIENT
  Age: 46 Year
  Sex: Female

DRUGS (6)
  1. ZOMIG [Suspect]
     Indication: MIGRAINE WITH AURA
     Route: 048
     Dates: end: 20061019
  2. KETOPROFEN [Suspect]
     Route: 048
     Dates: end: 20061019
  3. ACUPAN [Suspect]
     Route: 042
     Dates: end: 20061019
  4. KETOPROFEN [Suspect]
     Route: 042
     Dates: end: 20061019
  5. PROPOFOL [Suspect]
     Route: 048
     Dates: end: 20061019
  6. LEVOTHYROXINE SODIUM [Concomitant]
     Indication: POST PROCEDURAL HYPOTHYROIDISM
     Route: 048
     Dates: end: 20061019

REACTIONS (2)
  - DRUG ABUSER [None]
  - DRUG WITHDRAWAL SYNDROME [None]
